FAERS Safety Report 9551707 (Version 1)
Quarter: 2013Q3

REPORT INFORMATION
  Report Type: Spontaneous
  Country: US (occurrence: None)
  Receive Date: 20130923
  Receipt Date: 20130923
  Transmission Date: 20140515
  Serious: No
  Sender: FDA-Public Use
  Company Number: None

PATIENT
  Age: 10 Year
  Sex: Male

DRUGS (2)
  1. GENGRAF [Suspect]
     Indication: AUTOIMMUNE DISORDER
     Dosage: 1 CAPSULE TWICE A DAY ALONG WITH A 25 MG CAPSULE
     Dates: start: 20130823, end: 20130918
  2. GENGRAF [Suspect]
     Indication: RENAL DISORDER
     Dosage: 1 CAPSULE TWICE A DAY ALONG WITH A 25 MG CAPSULE
     Dates: start: 20130823, end: 20130918

REACTIONS (3)
  - Drug level decreased [None]
  - Product counterfeit [None]
  - Urinary incontinence [None]
